FAERS Safety Report 5267042-8 (Version None)
Quarter: 2007Q1

REPORT INFORMATION
  Report Type: 
  Country: None (occurrence: None)
  Receive Date: 20061213
  Receipt Date: 20030109
  Transmission Date: 20070707
  Serious: No
  Sender: FDA-Public Use
  Company Number: 2003UW00407

PATIENT
  Age: 73 Year
  Sex: Female

DRUGS (11)
  1. TAMOXIFEN CITRATE [Suspect]
  2. INDERAL [Concomitant]
  3. NORVASC [Concomitant]
  4. CLONIDINE [Concomitant]
  5. COUMADIN [Concomitant]
  6. NEXIUM [Concomitant]
  7. LASIX [Concomitant]
  8. LORTAB [Concomitant]
  9. DURAGESIC-100 [Concomitant]
  10. AMBIEN [Concomitant]
  11. KLOR-CON [Concomitant]

REACTIONS (1)
  - METASTASES TO BONE [None]
